FAERS Safety Report 11248240 (Version 2)
Quarter: 2015Q3

REPORT INFORMATION
  Report Type: Spontaneous
  Country: US (occurrence: US)
  Receive Date: 20150708
  Receipt Date: 20150718
  Transmission Date: 20151125
  Serious: Yes (Death, Other)
  Sender: FDA-Public Use
  Company Number: US-APOTEX-2015AP010465

PATIENT

DRUGS (2)
  1. PROPOFOL. [Suspect]
     Active Substance: PROPOFOL
     Indication: PRODUCT USED FOR UNKNOWN INDICATION
     Dosage: INFUSION FOR MORE THAN 24 HOURS
     Route: 050
  2. VALPROIC ACID ORAL SOLUTION USP [Suspect]
     Active Substance: VALPROIC ACID
     Indication: PRODUCT USED FOR UNKNOWN INDICATION
     Dosage: ATLEAST 1 DOSE
     Route: 065

REACTIONS (2)
  - Propofol infusion syndrome [Fatal]
  - Drug interaction [Fatal]
